FAERS Safety Report 7320179-1 (Version None)
Quarter: 2011Q1

REPORT INFORMATION
  Report Type: 
  Country: None (occurrence: None)
  Receive Date: 20110214
  Receipt Date: 20110127
  Transmission Date: 20110831
  Serious: Yes (Life-Threatening, Hospitalization, Other)
  Sender: FDA-Public Use
  Company Number: 2011-00139

PATIENT
  Age: 51 Year
  Sex: Female
  Weight: 122.0176 kg

DRUGS (3)
  1. LORATADINE [Concomitant]
  2. LISINOPRIL AND HYDROCHLOROTHIAZIDE [Suspect]
     Indication: HYPERTENSION
     Dosage: 1 IN 1 D, PER ORAL
     Route: 048
     Dates: end: 20110123
  3. PREVACID [Concomitant]

REACTIONS (7)
  - DYSPNOEA [None]
  - HYPERSENSITIVITY [None]
  - RHINORRHOEA [None]
  - DRUG INEFFECTIVE [None]
  - OBSTRUCTIVE AIRWAYS DISORDER [None]
  - COUGH [None]
  - SWELLING [None]
